FAERS Safety Report 8557688-3 (Version None)
Quarter: 2012Q3

REPORT INFORMATION
  Report Type: 
  Country: None (occurrence: None)
  Receive Date: 20120801
  Receipt Date: 20120731
  Transmission Date: 20120928
  Serious: Yes (Death, Other)
  Sender: FDA-Public Use
  Company Number: FR-BAYER-2012-075672

PATIENT
  Age: 76 Year
  Sex: Female

DRUGS (4)
  1. GADAVIST [Suspect]
     Indication: BLADDER ADENOCARCINOMA STAGE UNSPECIFIED
  2. GADAVIST [Suspect]
     Indication: RECTAL CANCER
  3. GADAVIST [Suspect]
     Indication: NUCLEAR MAGNETIC RESONANCE IMAGING ABDOMINAL
     Dosage: UNK
     Dates: start: 20120727
  4. ANTINEOPLASTIC AGENTS [Concomitant]
     Indication: ADENOCARCINOMA

REACTIONS (4)
  - PULSE ABSENT [None]
  - LOSS OF CONSCIOUSNESS [None]
  - CARDIO-RESPIRATORY ARREST [None]
  - PULMONARY EMBOLISM [None]
